FAERS Safety Report 26166323 (Version 1)
Quarter: 2025Q4

REPORT INFORMATION
  Report Type: Spontaneous
  Country: CA (occurrence: CA)
  Receive Date: 20251216
  Receipt Date: 20251216
  Transmission Date: 20260118
  Serious: Yes (Death, Life-Threatening, Hospitalization, Disabling, Congenital Anomaly, Other)
  Sender: Haleon PLC
  Company Number: CA-HALEON-2279381

PATIENT
  Age: 43 Year
  Sex: Female
  Weight: 68 kg

DRUGS (94)
  1. VOLTAREN [Suspect]
     Active Substance: DICLOFENAC SODIUM
     Indication: Product used for unknown indication
     Dosage: ROUTE: UNKNOWN
  2. DICLOFENAC POTASSIUM [Suspect]
     Active Substance: DICLOFENAC POTASSIUM
     Indication: Product used for unknown indication
  3. DICLOFENAC POTASSIUM [Suspect]
     Active Substance: DICLOFENAC POTASSIUM
     Dosage: ROUTE: UNKNOWN
  4. DICLOFENAC [Suspect]
     Active Substance: DICLOFENAC
     Indication: Product used for unknown indication
     Dosage: ROUTE: UNKNOWN
  5. DICLOFENAC SODIUM [Suspect]
     Active Substance: DICLOFENAC SODIUM
     Indication: Product used for unknown indication
     Dosage: ROUTE: UNKNOWN
  6. DICLOFENAC SODIUM [Suspect]
     Active Substance: DICLOFENAC SODIUM
     Dosage: ROUTE: UNKNOWN
  7. PANTOPRAZOLE SODIUM ANHYDROUS [Suspect]
     Active Substance: PANTOPRAZOLE SODIUM ANHYDROUS
     Indication: Product used for unknown indication
  8. PANTOPRAZOLE SODIUM ANHYDROUS [Suspect]
     Active Substance: PANTOPRAZOLE SODIUM ANHYDROUS
     Indication: Dyspepsia
     Dosage: ROUTE: UNKNOWN
  9. PANTOPRAZOLE SODIUM ANHYDROUS [Suspect]
     Active Substance: PANTOPRAZOLE SODIUM ANHYDROUS
  10. PANTOPRAZOLE SODIUM ANHYDROUS [Suspect]
     Active Substance: PANTOPRAZOLE SODIUM ANHYDROUS
  11. CANDESARTAN [Suspect]
     Active Substance: CANDESARTAN
     Indication: Migraine
  12. CORTISONE [Suspect]
     Active Substance: CORTISONE
     Indication: Product used for unknown indication
     Dosage: ROUTE: UNKNOWN
  13. CORTISONE [Suspect]
     Active Substance: CORTISONE
     Dosage: ROUTE: UNKNOWN
  14. CORTISONE [Suspect]
     Active Substance: CORTISONE
     Dosage: ROUTE: UNKNOWN
  15. DOMPERIDONE [Suspect]
     Active Substance: DOMPERIDONE
     Indication: Product used for unknown indication
     Dosage: ROUTE: UNKNOWN
  16. DOMPERIDONE [Suspect]
     Active Substance: DOMPERIDONE
     Dosage: ROUTE: UNKNOWN
  17. DOMPERIDONE MALEATE [Suspect]
     Active Substance: DOMPERIDONE MALEATE
     Indication: Product used for unknown indication
     Dosage: ROUTE: UNKNOWN
  18. ERELZI [Suspect]
     Active Substance: ETANERCEPT-SZZS
     Indication: Rheumatoid arthritis
     Dosage: ROUTE: UNKNOWN
  19. FOLIC ACID [Suspect]
     Active Substance: FOLIC ACID
     Indication: Rheumatoid arthritis
  20. FOLIC ACID [Suspect]
     Active Substance: FOLIC ACID
     Indication: Product used for unknown indication
  21. FOLIC ACID [Suspect]
     Active Substance: FOLIC ACID
  22. FOLIC ACID [Suspect]
     Active Substance: FOLIC ACID
     Dosage: ROUTE: UNKNOWN
  23. FOLIC ACID [Suspect]
     Active Substance: FOLIC ACID
     Dosage: ROUTE: UNKNOWN
  24. FOLIC ACID [Suspect]
     Active Substance: FOLIC ACID
  25. FOLIC ACID [Suspect]
     Active Substance: FOLIC ACID
  26. FOLIC ACID [Suspect]
     Active Substance: FOLIC ACID
     Dosage: ROUTE: UNKNOWN
  27. FOLIC ACID [Suspect]
     Active Substance: FOLIC ACID
  28. FOLIC ACID [Suspect]
     Active Substance: FOLIC ACID
  29. FOLIC ACID [Suspect]
     Active Substance: FOLIC ACID
     Dosage: ROUTE: UNKNOWN
  30. HYDROCORTISONE [Suspect]
     Active Substance: HYDROCORTISONE
     Indication: Rheumatoid arthritis
     Dosage: ROUTE: UNKNOWN
  31. HYDROCORTISONE SODIUM PHOSPHATE [Suspect]
     Active Substance: HYDROCORTISONE SODIUM PHOSPHATE
     Indication: Rheumatoid arthritis
     Dosage: ROUTE: UNKNOWN
  32. LAMICTAL [Suspect]
     Active Substance: LAMOTRIGINE
     Indication: Product used for unknown indication
  33. LEFLUNOMIDE [Suspect]
     Active Substance: LEFLUNOMIDE
     Indication: Rheumatoid arthritis
  34. LEFLUNOMIDE [Suspect]
     Active Substance: LEFLUNOMIDE
     Indication: Product used for unknown indication
     Dosage: ROUTE: UNKNOWN
  35. LEFLUNOMIDE [Suspect]
     Active Substance: LEFLUNOMIDE
     Dosage: ROUTE: UNKNOWN
  36. MYCOPHENOLATE MOFETIL [Suspect]
     Active Substance: MYCOPHENOLATE MOFETIL
     Indication: Product used for unknown indication
     Dosage: ROUTE: UNKNOWN
  37. OXYCODONE HYDROCHLORIDE [Suspect]
     Active Substance: OXYCODONE HYDROCHLORIDE
     Indication: Product used for unknown indication
     Dosage: ROUTE: UNKNOWN
  38. QUETIAPINE FUMARATE [Suspect]
     Active Substance: QUETIAPINE FUMARATE
     Indication: Product used for unknown indication
  39. RAMIPRIL [Suspect]
     Active Substance: RAMIPRIL
     Indication: Product used for unknown indication
     Dosage: ROUTE: UNKNOWN
  40. ADALIMUMAB [Suspect]
     Active Substance: ADALIMUMAB
     Indication: Rheumatoid arthritis
  41. ADALIMUMAB [Suspect]
     Active Substance: ADALIMUMAB
     Indication: Product used for unknown indication
  42. ADALIMUMAB [Suspect]
     Active Substance: ADALIMUMAB
     Indication: Rheumatoid arthritis
     Dosage: DOSE FORM: SOLUTION SUBCUTANEOUS
  43. ADALIMUMAB [Suspect]
     Active Substance: ADALIMUMAB
     Indication: Product used for unknown indication
  44. AIMOVIG [Suspect]
     Active Substance: ERENUMAB-AOOE
     Indication: Migraine
     Dosage: DOSE FORM: SOLUTION ROUTE: UNKNOWN
  45. ALENDRONATE SODIUM [Suspect]
     Active Substance: ALENDRONATE SODIUM
     Indication: Rheumatoid arthritis
  46. ALENDRONATE SODIUM [Suspect]
     Active Substance: ALENDRONATE SODIUM
     Indication: Product used for unknown indication
  47. CETIRIZINE [Suspect]
     Active Substance: CETIRIZINE HYDROCHLORIDE
     Indication: Product used for unknown indication
     Dosage: ROUTE: UNKNOWN
  48. CETIRIZINE [Suspect]
     Active Substance: CETIRIZINE HYDROCHLORIDE
     Dosage: ROUTE: UNKNOWN
  49. COSENTYX [Suspect]
     Active Substance: SECUKINUMAB
     Indication: Rheumatoid arthritis
     Dosage: ROUTE: UNKNOWN
  50. COSENTYX [Suspect]
     Active Substance: SECUKINUMAB
     Indication: Psoriatic arthropathy
  51. COSENTYX [Suspect]
     Active Substance: SECUKINUMAB
     Indication: Rheumatoid arthritis
     Dosage: DOSE FORM: SOLUTION FOR INJECTION IN PRE-FILLED PEN
  52. COSENTYX [Suspect]
     Active Substance: SECUKINUMAB
     Indication: Psoriatic arthropathy
  53. FOLIC ACID [Suspect]
     Active Substance: FOLIC ACID
     Indication: Rheumatoid arthritis
     Dosage: ROUTE: UNKNOWN
  54. FOLIC ACID [Suspect]
     Active Substance: FOLIC ACID
     Indication: Product used for unknown indication
  55. INFLIXIMAB [Suspect]
     Active Substance: INFLIXIMAB
     Indication: Rheumatoid arthritis
     Dosage: ROUTE: UNKNOWN
  56. METHOTREXATE [Suspect]
     Active Substance: METHOTREXATE
     Indication: Rheumatoid arthritis
  57. METHOTREXATE [Suspect]
     Active Substance: METHOTREXATE
     Indication: Psoriatic arthropathy
  58. METHOTREXATE [Suspect]
     Active Substance: METHOTREXATE
     Indication: Product used for unknown indication
  59. METHOTREXATE [Suspect]
     Active Substance: METHOTREXATE
     Indication: Rheumatoid arthritis
     Dosage: ROUTE: PARENTERAL
  60. METHOTREXATE [Suspect]
     Active Substance: METHOTREXATE
     Indication: Psoriatic arthropathy
  61. METHOTREXATE [Suspect]
     Active Substance: METHOTREXATE
     Indication: Product used for unknown indication
  62. METHOTREXATE [Suspect]
     Active Substance: METHOTREXATE
     Dosage: ROUTE: INTRA-ARTERIAL
  63. METHOTREXATE [Suspect]
     Active Substance: METHOTREXATE
  64. METHOTREXATE [Suspect]
     Active Substance: METHOTREXATE
     Dosage: ROUTE: UNKNOWN
  65. METHOTREXATE [Suspect]
     Active Substance: METHOTREXATE
  66. METHOTREXATE [Suspect]
     Active Substance: METHOTREXATE
     Dosage: ROUTE: UNKNOWN
  67. METHOTREXATE [Suspect]
     Active Substance: METHOTREXATE
  68. METHOTREXATE [Suspect]
     Active Substance: METHOTREXATE
     Dosage: ROUTE: UNKNOWN
  69. METHOTREXATE [Suspect]
     Active Substance: METHOTREXATE
     Dosage: ROUTE: UNKNOWN
  70. METHOTREXATE [Suspect]
     Active Substance: METHOTREXATE
  71. METHOTREXATE [Suspect]
     Active Substance: METHOTREXATE
     Dosage: ROUTE: UNKNOWN
  72. METHOTREXATE [Suspect]
     Active Substance: METHOTREXATE
     Dosage: ROUTE: INTRA-ARTERIAL
  73. METHOTREXATE [Suspect]
     Active Substance: METHOTREXATE
     Dosage: ROUTE: INTRA-ARTERIAL
  74. METHOTREXATE [Suspect]
     Active Substance: METHOTREXATE
  75. METHOTREXATE [Suspect]
     Active Substance: METHOTREXATE
  76. METHOTREXATE [Suspect]
     Active Substance: METHOTREXATE
  77. NAPROXEN [Suspect]
     Active Substance: NAPROXEN
     Indication: Product used for unknown indication
     Dosage: ROUTE: UNKNOWN
  78. NAPROXEN [Suspect]
     Active Substance: NAPROXEN
     Dosage: ROUTE: UNKNOWN
  79. NAPROXEN [Suspect]
     Active Substance: NAPROXEN
     Dosage: ROUTE: UNKNOWN
  80. TOPICORT [Suspect]
     Active Substance: DESOXIMETASONE
     Indication: Product used for unknown indication
     Dosage: ROUTE: UNKNOWN
  81. TOPICORT [Suspect]
     Active Substance: DESOXIMETASONE
     Dosage: ROUTE: UNKNOWN
  82. TOPICORT [Suspect]
     Active Substance: DESOXIMETASONE
     Dosage: ROUTE: UNKNOWN
  83. TOPICORT [Suspect]
     Active Substance: DESOXIMETASONE
     Dosage: ROUTE: UNKNOWN
  84. TOPICORT [Suspect]
     Active Substance: DESOXIMETASONE
     Dosage: ROUTE: UNKNOWN
  85. TOPICORT [Suspect]
     Active Substance: DESOXIMETASONE
     Dosage: ROUTE: UNKNOWN
  86. RITUXIMAB [Suspect]
     Active Substance: RITUXIMAB
     Indication: Rheumatoid arthritis
  87. RITUXIMAB [Suspect]
     Active Substance: RITUXIMAB
     Indication: Product used for unknown indication
     Dosage: ROUTE: INTRAVENOUS BOLUS
  88. RITUXIMAB [Suspect]
     Active Substance: RITUXIMAB
  89. RITUXIMAB [Suspect]
     Active Substance: RITUXIMAB
  90. RITUXIMAB [Suspect]
     Active Substance: RITUXIMAB
  91. RITUXIMAB [Suspect]
     Active Substance: RITUXIMAB
     Dosage: ROUTE: UNKNOWN
  92. TOPIRAMATE [Suspect]
     Active Substance: TOPIRAMATE
     Indication: Product used for unknown indication
     Dosage: ROUTE: UNKNOWN
  93. TOPIRAMATE [Suspect]
     Active Substance: TOPIRAMATE
     Dosage: ROUTE: UNKNOWN
  94. TRAZODONE [Suspect]
     Active Substance: TRAZODONE HYDROCHLORIDE
     Indication: Product used for unknown indication
     Dosage: ROUTE: UNKNOWN

REACTIONS (54)
  - Systemic lupus erythematosus [Fatal]
  - Abdominal discomfort [Fatal]
  - Discomfort [Fatal]
  - Joint range of motion decreased [Fatal]
  - Gait disturbance [Fatal]
  - Blood cholesterol increased [Fatal]
  - Dislocation of vertebra [Fatal]
  - Arthralgia [Fatal]
  - Maternal exposure during pregnancy [Fatal]
  - Wound [Fatal]
  - Condition aggravated [Fatal]
  - Delirium [Fatal]
  - C-reactive protein abnormal [Fatal]
  - Adjustment disorder with depressed mood [Fatal]
  - Duodenal ulcer perforation [Fatal]
  - Wheezing [Fatal]
  - Decreased appetite [Fatal]
  - Hypoaesthesia [Fatal]
  - Blister [Fatal]
  - Pemphigus [Fatal]
  - Swelling [Fatal]
  - Hypertension [Fatal]
  - Bursitis [Fatal]
  - Alopecia [Fatal]
  - Hand deformity [Fatal]
  - Grip strength decreased [Fatal]
  - Abdominal pain [Fatal]
  - Intentional product use issue [Fatal]
  - Dry mouth [Fatal]
  - Type 2 diabetes mellitus [Fatal]
  - General physical health deterioration [Fatal]
  - Drug intolerance [Fatal]
  - Wound infection [Fatal]
  - Vomiting [Fatal]
  - Ear pain [Fatal]
  - Drug hypersensitivity [Fatal]
  - Synovitis [Fatal]
  - Depression [Fatal]
  - Amnesia [Fatal]
  - Anxiety [Fatal]
  - Rash [Fatal]
  - Anti-cyclic citrullinated peptide antibody positive [Fatal]
  - Helicobacter infection [Fatal]
  - Fatigue [Fatal]
  - Breast cancer stage III [Fatal]
  - Hepatic enzyme increased [Fatal]
  - Pericarditis [Fatal]
  - Fibromyalgia [Fatal]
  - Glossodynia [Fatal]
  - Arthropathy [Fatal]
  - Live birth [Fatal]
  - Diarrhoea [Fatal]
  - Dyspnoea [Fatal]
  - Asthenia [Fatal]
